FAERS Safety Report 13576747 (Version 1)
Quarter: 2017Q2

REPORT INFORMATION
  Report Type: Spontaneous
  Country: BR (occurrence: BR)
  Receive Date: 20170524
  Receipt Date: 20170524
  Transmission Date: 20170830
  Serious: Yes (Other)
  Sender: FDA-Public Use
  Company Number: BR-ABBVIE-16P-020-1698179-00

PATIENT
  Age: 58 Year
  Sex: Female
  Weight: 70 kg

DRUGS (6)
  1. RISPERIDONE. [Concomitant]
     Active Substance: RISPERIDONE
     Indication: MANIA
     Dosage: DAILY DOSE: 1 MG AT NIGHT.
     Dates: start: 1996
  2. DIAZEPAM. [Concomitant]
     Active Substance: DIAZEPAM
     Indication: SLEEP DISORDER THERAPY
     Dosage: DAILY DOSE: 10 MG AT NIGHT
     Dates: start: 1996
  3. DEPAKENE [Suspect]
     Active Substance: VALPROIC ACID
     Indication: PRODUCT USED FOR UNKNOWN INDICATION
     Route: 065
  4. DEPAKOTE ER [Suspect]
     Active Substance: DIVALPROEX SODIUM
     Indication: BIPOLAR DISORDER
     Dosage: DAILY DOSE: 1000 MG; 500 MG IN THE MORNING/NIGHT
     Route: 065
     Dates: start: 201512, end: 20160725
  5. DEPAKOTE ER [Suspect]
     Active Substance: DIVALPROEX SODIUM
     Dosage: DAILY DOSE: 1500 MG ; 500 MG IN THE MORNING/AFTERNOON/NIGHT
     Route: 065
     Dates: start: 20160725, end: 20160801
  6. DEPAKOTE ER [Suspect]
     Active Substance: DIVALPROEX SODIUM
     Route: 065
     Dates: start: 20160801, end: 201702

REACTIONS (8)
  - Bipolar disorder [Recovered/Resolved]
  - Thinking abnormal [Recovered/Resolved]
  - Hypophagia [Recovered/Resolved]
  - Dizziness [Recovered/Resolved]
  - Tremor [Not Recovered/Not Resolved]
  - Feeling cold [Recovered/Resolved]
  - Sleep disorder [Recovered/Resolved]
  - Tremor [Recovering/Resolving]

NARRATIVE: CASE EVENT DATE: 201607
